FAERS Safety Report 7587646-7 (Version None)
Quarter: 2011Q3

REPORT INFORMATION
  Report Type: 
  Country: None (occurrence: None)
  Receive Date: 20110704
  Receipt Date: 20110624
  Transmission Date: 20111222
  Serious: Yes (Other)
  Sender: FDA-Public Use
  Company Number: PHHY2011CA42064

PATIENT
  Sex: Male

DRUGS (1)
  1. ZOMETA [Suspect]
     Indication: RENAL CELL CARCINOMA
     Dosage: 4 MG EVERY 8 WEEKS
     Route: 042
     Dates: start: 20110511

REACTIONS (4)
  - BLOOD PRESSURE INCREASED [None]
  - BONE PAIN [None]
  - LOWER LIMB FRACTURE [None]
  - PAIN [None]
